FAERS Safety Report 21220479 (Version 2)
Quarter: 2022Q3

REPORT INFORMATION
  Report Type: Report from Study
  Country: DE (occurrence: DE)
  Receive Date: 20220817
  Receipt Date: 20220901
  Transmission Date: 20221027
  Serious: Yes (Hospitalization)
  Sender: FDA-Public Use
  Company Number: DE-NOVARTISPH-NVSC2022DE185229

PATIENT
  Age: 48 Year
  Sex: Male
  Weight: 80 kg

DRUGS (12)
  1. DABRAFENIB [Suspect]
     Active Substance: DABRAFENIB
     Indication: Malignant melanoma stage III
     Dosage: 300 MG
     Route: 065
     Dates: start: 20210512, end: 20210529
  2. DABRAFENIB [Suspect]
     Active Substance: DABRAFENIB
     Indication: BRAF V600E mutation positive
     Dosage: UNK
     Route: 065
     Dates: start: 20210616
  3. DABRAFENIB [Suspect]
     Active Substance: DABRAFENIB
     Dosage: 300 MG (150 MG, 2X DAILY)
     Route: 048
     Dates: end: 20220126
  4. TRAMETINIB [Suspect]
     Active Substance: TRAMETINIB
     Indication: Malignant melanoma stage III
     Dosage: 2 MG
     Route: 065
     Dates: start: 20210512, end: 20210529
  5. TRAMETINIB [Suspect]
     Active Substance: TRAMETINIB
     Indication: BRAF V600E mutation positive
     Dosage: UNK
     Route: 065
     Dates: start: 20210616
  6. TRAMETINIB [Suspect]
     Active Substance: TRAMETINIB
     Dosage: 2 MG, QD (1 DAILY)
     Route: 048
     Dates: end: 20220126
  7. NIVOLUMAB [Concomitant]
     Active Substance: NIVOLUMAB
     Indication: Adjuvant therapy
     Dosage: UNK
     Route: 065
     Dates: start: 20210108, end: 20210401
  8. NIVOLUMAB [Concomitant]
     Active Substance: NIVOLUMAB
     Dosage: 480 MG
     Route: 042
  9. HYDROCORTISONE [Concomitant]
     Active Substance: HYDROCORTISONE
     Indication: Product used for unknown indication
     Dosage: 15 MG (10-5-0 MG)
     Route: 048
     Dates: start: 20210606, end: 20211006
  10. METHYLPREDNISOLONE [Concomitant]
     Active Substance: METHYLPREDNISOLONE
     Indication: Product used for unknown indication
     Dosage: UNK
     Route: 065
     Dates: start: 20210603, end: 20210606
  11. METHYLPREDNISOLONE [Concomitant]
     Active Substance: METHYLPREDNISOLONE
     Dosage: 40 MG, QD
     Route: 042
     Dates: end: 20210605
  12. METHYLPREDNISOLONE [Concomitant]
     Active Substance: METHYLPREDNISOLONE
     Indication: Product used for unknown indication
     Dosage: 15 MG (10-5-0 MG)
     Route: 042
     Dates: start: 20210607

REACTIONS (5)
  - Hypothyroidism [Not Recovered/Not Resolved]
  - Immune-mediated hypophysitis [Recovered/Resolved with Sequelae]
  - Cortisol decreased [Unknown]
  - General physical health deterioration [Unknown]
  - Pyrexia [Unknown]

NARRATIVE: CASE EVENT DATE: 20210530
